FAERS Safety Report 5757921-7 (Version None)
Quarter: 2008Q2

REPORT INFORMATION
  Report Type: 
  Country: None (occurrence: None)
  Receive Date: 20080602
  Receipt Date: 20080602
  Transmission Date: 20081010
  Serious: Yes (Other)
  Sender: FDA-Public Use
  Company Number: None

PATIENT
  Age: 45 Year
  Sex: Male
  Weight: 90.7194 kg

DRUGS (1)
  1. CARTIA XT [Suspect]
     Indication: HYPERTENSION
     Dosage: 120MG ONCE DAILY PO
     Route: 048
     Dates: start: 20080518, end: 20080601

REACTIONS (6)
  - ACNE [None]
  - DRUG INEFFECTIVE [None]
  - LIP PAIN [None]
  - LIP SWELLING [None]
  - OEDEMA [None]
  - RASH ERYTHEMATOUS [None]
